FAERS Safety Report 6719705-2 (Version None)
Quarter: 2010Q2

REPORT INFORMATION
  Report Type: 
  Country: None (occurrence: None)
  Receive Date: 20100511
  Receipt Date: 20100427
  Transmission Date: 20101027
  Serious: Yes (Other)
  Sender: FDA-Public Use
  Company Number: PHHY2010US27646

PATIENT
  Age: 62 Year
  Sex: Female
  Weight: 53.9 kg

DRUGS (8)
  1. GLEEVEC [Suspect]
     Indication: CHRONIC MYELOID LEUKAEMIA
     Dosage: 400 MG, UNK
     Route: 048
     Dates: start: 20091210
  2. ASPIRIN [Concomitant]
  3. DETROL [Concomitant]
  4. RELPAX [Concomitant]
  5. ZANTAC [Concomitant]
  6. PHENERGAN [Concomitant]
  7. COMPAZINE [Concomitant]
  8. ZOFRAN [Concomitant]

REACTIONS (2)
  - ANKLE FRACTURE [None]
  - IMPAIRED HEALING [None]
